FAERS Safety Report 5309553-2 (Version None)
Quarter: 2007Q2

REPORT INFORMATION
  Report Type: 
  Country: None (occurrence: None)
  Receive Date: 20070424
  Receipt Date: 20070410
  Transmission Date: 20071010
  Serious: Yes (Other)
  Sender: FDA-Public Use
  Company Number: 232883K07USA

PATIENT
  Age: 61 Year
  Sex: Female

DRUGS (1)
  1. REBIF [Suspect]
     Indication: MULTIPLE SCLEROSIS
     Dosage: 44 MCG, 3 IN 1 WEEKS, NOT REPORTED
     Dates: start: 20051207, end: 20060601

REACTIONS (8)
  - BODY TEMPERATURE INCREASED [None]
  - CROHN'S DISEASE [None]
  - LIVER FUNCTION TEST ABNORMAL [None]
  - NAUSEA [None]
  - RENAL ATROPHY [None]
  - RENAL FAILURE [None]
  - SWELLING [None]
  - VOMITING [None]
